FAERS Safety Report 21343735 (Version 1)
Quarter: 2022Q3

REPORT INFORMATION
  Report Type: Spontaneous
  Country: US (occurrence: US)
  Receive Date: 20220916
  Receipt Date: 20220916
  Transmission Date: 20221027
  Serious: No
  Sender: FDA-Public Use
  Company Number: US-REGENERON PHARMACEUTICALS, INC.-2021-119393

PATIENT
  Sex: Female

DRUGS (17)
  1. PRALUENT [Suspect]
     Active Substance: ALIROCUMAB
     Indication: Type IIa hyperlipidaemia
     Dosage: 75 MG, Q2W
     Route: 058
     Dates: start: 20210316, end: 20220117
  2. PRALUENT [Suspect]
     Active Substance: ALIROCUMAB
     Indication: Arteriosclerosis coronary artery
  3. PRALUENT [Suspect]
     Active Substance: ALIROCUMAB
     Indication: Hypercholesterolaemia
  4. PROLIA [Concomitant]
     Active Substance: DENOSUMAB
     Indication: Product used for unknown indication
     Dosage: 2X
  5. OMEPRAZOL                          /00661201/ [Concomitant]
     Indication: Product used for unknown indication
     Dosage: 20 MG, UNK
  6. LEVOTHYROXINE                      /00068002/ [Concomitant]
     Indication: Product used for unknown indication
     Dosage: 4 MG, UNK
  7. CALCIUM\VITAMIN D [Concomitant]
     Active Substance: CALCIUM\VITAMIN D
     Indication: Product used for unknown indication
     Dosage: 650 MG, TID
  8. FISH OIL                           /00492901/ [Concomitant]
     Indication: Product used for unknown indication
  9. COENZYME Q10 [Concomitant]
     Active Substance: DIETARY SUPPLEMENT\UBIDECARENONE
     Indication: Product used for unknown indication
     Dosage: 200 MG, UNK
  10. NITROSTAT [Concomitant]
     Active Substance: NITROGLYCERIN
     Indication: Product used for unknown indication
     Dosage: 4 MG, AS NECESSARY
  11. MOMETASONE FUROATE [Concomitant]
     Active Substance: MOMETASONE FUROATE
     Indication: Product used for unknown indication
     Dosage: 50 ?G, AS NECESSARY
  12. MULTI VITAMIN                      /08408501/ [Concomitant]
     Indication: Product used for unknown indication
  13. CETIRIZINE                         /00884302/ [Concomitant]
     Indication: Product used for unknown indication
     Dosage: 10 MG, UNK
  14. GLUCOSAMINE                        /00943602/ [Concomitant]
     Indication: Product used for unknown indication
  15. CHONDROITIN                        /00023543/ [Concomitant]
     Indication: Product used for unknown indication
     Dosage: 400 MG, UNK
  16. ASPIRIN [Concomitant]
     Active Substance: ASPIRIN
     Indication: Product used for unknown indication
     Dosage: 81 MG, UNK
  17. LIVALO [Concomitant]
     Active Substance: PITAVASTATIN CALCIUM
     Indication: Product used for unknown indication
     Dosage: 4 MG, UNK

REACTIONS (3)
  - Muscle spasms [Recovered/Resolved]
  - Product dose omission issue [Unknown]
  - Therapy interrupted [Unknown]

NARRATIVE: CASE EVENT DATE: 20210817
